FAERS Safety Report 7476876-0 (Version None)
Quarter: 2011Q2

REPORT INFORMATION
  Report Type: 
  Country: None (occurrence: None)
  Receive Date: 20110512
  Receipt Date: 20091122
  Transmission Date: 20111010
  Serious: Yes (Death, Hospitalization, Other)
  Sender: FDA-Public Use
  Company Number: US-BAYER-200940378NA

PATIENT
  Age: 82 Year
  Sex: Male
  Weight: 83.9 kg

DRUGS (14)
  1. ISOSORBIDE [ISOSORBIDE] [Concomitant]
     Dosage: 30 MG, UNK
     Route: 048
     Dates: start: 20031009
  2. PROTAMINE SULFATE [Concomitant]
     Dosage: 500 MG, UNK
     Route: 042
     Dates: start: 20051218, end: 20051218
  3. LEVOPHED [Concomitant]
     Dosage: 50-60
     Route: 042
     Dates: start: 20051218, end: 20051218
  4. PROSCAR [Concomitant]
     Dosage: 5 MG, UNK
     Route: 048
     Dates: start: 20031009
  5. INSULIN [INSULIN] [Concomitant]
     Dosage: 7 U, UNK
     Dates: start: 20051218, end: 20051218
  6. DOBUTREX [Concomitant]
     Dosage: 10
     Route: 042
     Dates: start: 20051218, end: 20051218
  7. TOPROL-XL [Concomitant]
     Dosage: 25 MG, UNK
     Route: 048
     Dates: start: 20030930
  8. NIFEDIPINE [Concomitant]
     Dosage: 30 MG, UNK
     Route: 048
     Dates: start: 20030930
  9. TRASYLOL [Suspect]
     Indication: MITRAL VALVE REPLACEMENT
     Dosage: 200 ML PUMP PRIME LOADING DOSE
     Route: 042
     Dates: start: 20051218, end: 20051218
  10. TRASYLOL [Suspect]
     Indication: TRICUSPID VALVE REPAIR
     Dosage: 50CC/HR INFUSION
     Route: 042
     Dates: start: 20051218, end: 20051218
  11. SOLU-MEDROL [Concomitant]
     Dosage: 2000 MG, UNK
     Route: 042
     Dates: start: 20051218, end: 20051218
  12. TRASYLOL [Suspect]
     Indication: CORONARY ARTERY BYPASS
     Dosage: 1ML INITIAL TEST DOSE
     Route: 042
     Dates: start: 20051218, end: 20051218
  13. TRASYLOL [Suspect]
     Indication: THYMECTOMY
  14. VANCOMYCIN [Concomitant]
     Dosage: 1 G, UNK
     Route: 042
     Dates: start: 20051218, end: 20051218

REACTIONS (15)
  - UNEVALUABLE EVENT [None]
  - MULTI-ORGAN FAILURE [None]
  - CARDIOGENIC SHOCK [None]
  - RENAL IMPAIRMENT [None]
  - EMOTIONAL DISTRESS [None]
  - ANHEDONIA [None]
  - DEATH [None]
  - ANXIETY [None]
  - FEAR [None]
  - RENAL FAILURE ACUTE [None]
  - RENAL FAILURE [None]
  - STRESS [None]
  - INJURY [None]
  - RENAL INJURY [None]
  - PAIN [None]
